FAERS Safety Report 4514769-9 (Version None)
Quarter: 2004Q4

REPORT INFORMATION
  Report Type: 
  Country: None (occurrence: None)
  Receive Date: 20041201
  Receipt Date: 20041119
  Transmission Date: 20050328
  Serious: Yes (Hospitalization)
  Sender: FDA-Public Use
  Company Number: US-JNJFOC-20041105186

PATIENT
  Sex: Female

DRUGS (9)
  1. INFLIXIMAB [Suspect]
     Route: 042
  2. INFLIXIMAB [Suspect]
     Indication: RHEUMATOID ARTHRITIS
     Route: 042
  3. PLAVIX [Concomitant]
  4. LOPRESSOR [Concomitant]
  5. DIDRONEL [Concomitant]
  6. ASPIRIN [Concomitant]
  7. CALTRATE [Concomitant]
  8. PREDNISONE [Concomitant]
  9. HUMIRA [Concomitant]

REACTIONS (4)
  - ASTHENIA [None]
  - CEREBRAL INFARCTION [None]
  - CEREBROVASCULAR DISORDER [None]
  - CONFUSIONAL STATE [None]
